FAERS Safety Report 15001839 (Version 5)
Quarter: 2019Q1

REPORT INFORMATION
  Report Type: Spontaneous
  Country: GB (occurrence: FR)
  Receive Date: 20180612
  Receipt Date: 20190311
  Transmission Date: 20190417
  Serious: Yes (Other)
  Sender: FDA-Public Use
  Company Number: FR-TEVA-2018-FR-906104

PATIENT
  Age: 48 Year
  Sex: Female

DRUGS (21)
  1. LEPONEX [Suspect]
     Active Substance: CLOZAPINE
     Dosage: 25 MILLIGRAM DAILY;
     Route: 048
     Dates: start: 20180331, end: 20180402
  2. OLANZAPINE. [Suspect]
     Active Substance: OLANZAPINE
     Indication: PRODUCT USED FOR UNKNOWN INDICATION
     Dosage: UNK
     Route: 065
     Dates: end: 201802
  3. CLOZAPINE. [Suspect]
     Active Substance: CLOZAPINE
     Dosage: 250 MILLIGRAM DAILY;
     Route: 065
     Dates: start: 20180505, end: 20180514
  4. CLOZAPINE. [Suspect]
     Active Substance: CLOZAPINE
     Dosage: 150 MILLIGRAM DAILY;
     Route: 065
     Dates: start: 20180420, end: 20180423
  5. CLOZAPINE. [Suspect]
     Active Substance: CLOZAPINE
     Dosage: 200 MILLIGRAM DAILY;
     Route: 065
     Dates: start: 20180423, end: 20180503
  6. CLOZAPINE. [Suspect]
     Active Substance: CLOZAPINE
     Dosage: 100 MILLIGRAM DAILY;
     Route: 065
     Dates: start: 20180417, end: 20180419
  7. TERCIAN [Concomitant]
     Active Substance: CYAMEMAZINE
     Indication: PRODUCT USED FOR UNKNOWN INDICATION
     Dosage: 3.5 DOSAGE FORMS DAILY; 3.5 DF, QD
     Route: 048
     Dates: start: 20180131
  8. LEPONEX [Suspect]
     Active Substance: CLOZAPINE
     Indication: SCHIZOPHRENIA
     Dosage: 75 MG, QD
     Route: 048
     Dates: start: 20180408
  9. LEPONEX [Suspect]
     Active Substance: CLOZAPINE
     Dosage: 25 MILLIGRAM DAILY; 25 MG, QD
     Route: 048
     Dates: start: 201802, end: 20180331
  10. ALPRAZOLAM. [Concomitant]
     Active Substance: ALPRAZOLAM
     Indication: PRODUCT USED FOR UNKNOWN INDICATION
     Dosage: 3 DOSAGE FORMS DAILY;
     Route: 048
     Dates: start: 20180131
  11. CLOZAPINE. [Suspect]
     Active Substance: CLOZAPINE
     Indication: PRODUCT USED FOR UNKNOWN INDICATION
     Dosage: 125 MILLIGRAM DAILY;
     Route: 065
     Dates: start: 20180419, end: 20180420
  12. LEPONEX [Suspect]
     Active Substance: CLOZAPINE
     Dosage: 50 MILLIGRAM DAILY;
     Route: 048
     Dates: start: 20180402, end: 20180408
  13. SOLIAN [Concomitant]
     Active Substance: AMISULPRIDE
     Dates: start: 20180505
  14. CLOZAPINE. [Suspect]
     Active Substance: CLOZAPINE
     Dosage: 275 MILLIGRAM DAILY;
     Route: 065
     Dates: start: 20180514
  15. LEPONEX [Suspect]
     Active Substance: CLOZAPINE
     Dosage: 75 MILLIGRAM DAILY;
     Route: 048
     Dates: start: 20180408, end: 20180417
  16. ZOLOFT [Concomitant]
     Active Substance: SERTRALINE HYDROCHLORIDE
     Indication: PRODUCT USED FOR UNKNOWN INDICATION
     Dosage: 3 DOSAGE FORMS DAILY; 3 DF, QD
     Route: 048
     Dates: start: 20180131
  17. CLOZAPINE. [Suspect]
     Active Substance: CLOZAPINE
     Route: 065
     Dates: start: 20180503, end: 20180505
  18. CLOZAPINE. [Suspect]
     Active Substance: CLOZAPINE
     Route: 065
  19. LEPONEX [Suspect]
     Active Substance: CLOZAPINE
     Dosage: UNK
     Route: 048
     Dates: start: 201707
  20. LEPONEX [Suspect]
     Active Substance: CLOZAPINE
     Dosage: 50 MG, QD
     Route: 065
     Dates: start: 20180402, end: 20180408
  21. SOLIAN [Concomitant]
     Active Substance: AMISULPRIDE
     Indication: PRODUCT USED FOR UNKNOWN INDICATION
     Dosage: 3 DOSAGE FORMS DAILY;
     Route: 048
     Dates: start: 20180227, end: 20180505

REACTIONS (2)
  - Condition aggravated [Not Recovered/Not Resolved]
  - Lymphopenia [Not Recovered/Not Resolved]
